FAERS Safety Report 4893475-5 (Version None)
Quarter: 2006Q1

REPORT INFORMATION
  Report Type: 
  Country: None (occurrence: None)
  Receive Date: 20060127
  Receipt Date: 20050512
  Transmission Date: 20060701
  Serious: No
  Sender: FDA-Public Use
  Company Number: US-BRISTOL-MYERS SQUIBB COMPANY-12966099

PATIENT
  Age: 55 Year
  Sex: Male
  Weight: 50 kg

DRUGS (1)
  1. KENALOG [Suspect]
     Indication: PAIN
     Dates: start: 20050422, end: 20050511

REACTIONS (1)
  - ERECTILE DYSFUNCTION [None]
